FAERS Safety Report 6726486-5 (Version None)
Quarter: 2010Q2

REPORT INFORMATION
  Report Type: 
  Country: None (occurrence: None)
  Receive Date: 20100514
  Receipt Date: 20100402
  Transmission Date: 20101027
  Serious: Yes (Other)
  Sender: FDA-Public Use
  Company Number: US-BAXTER-2009BH011455

PATIENT
  Age: 32 Year
  Sex: Female
  Weight: 111 kg

DRUGS (9)
  1. HEPARIN SODIUM INJECTION [Suspect]
     Indication: FACTOR V LEIDEN MUTATION
     Route: 058
     Dates: start: 20071101, end: 20080205
  2. HEPARIN SODIUM INJECTION [Suspect]
     Route: 058
     Dates: start: 20080205, end: 20080208
  3. HEPARIN SODIUM INJECTION [Suspect]
     Route: 058
     Dates: start: 20080209, end: 20080301
  4. HEPARIN SODIUM INJECTION [Suspect]
     Route: 058
     Dates: start: 20071101, end: 20080205
  5. HEPARIN SODIUM INJECTION [Suspect]
     Route: 058
     Dates: start: 20080209, end: 20080301
  6. HEPARIN SODIUM INJECTION [Suspect]
     Route: 058
     Dates: start: 20080205, end: 20080208
  7. PRENATAL VITAMINS [Concomitant]
     Indication: DRUG USE FOR UNKNOWN INDICATION
     Route: 065
  8. COMBIVENT                               /GFR/ [Concomitant]
     Indication: DRUG USE FOR UNKNOWN INDICATION
     Route: 055
  9. ALBUTEROL [Concomitant]
     Indication: DRUG USE FOR UNKNOWN INDICATION
     Route: 055

REACTIONS (43)
  - ABDOMINAL PAIN [None]
  - ABDOMINAL PAIN UPPER [None]
  - ALOPECIA [None]
  - ANAEMIA [None]
  - ASTHMA [None]
  - BLOOD CALCIUM ABNORMAL [None]
  - BURNING SENSATION [None]
  - CHEST PAIN [None]
  - CYSTITIS [None]
  - DEHYDRATION [None]
  - DIARRHOEA [None]
  - DIZZINESS [None]
  - DRUG EXPOSURE DURING PREGNANCY [None]
  - DYSPHAGIA [None]
  - DYSPNOEA [None]
  - EOSINOPHILIA [None]
  - ERYTHEMA [None]
  - FAECAL INCONTINENCE [None]
  - GASTROINTESTINAL DISORDER [None]
  - HAEMATOCHEZIA [None]
  - HAEMORRHOIDS [None]
  - HEADACHE [None]
  - HEART RATE INCREASED [None]
  - HEART RATE IRREGULAR [None]
  - HEPATIC ENZYME INCREASED [None]
  - HYPOAESTHESIA [None]
  - IMPAIRED WORK ABILITY [None]
  - INFLUENZA [None]
  - INJECTION SITE PAIN [None]
  - LYMPHADENOPATHY [None]
  - MALAISE [None]
  - MULTI-ORGAN DISORDER [None]
  - NAUSEA [None]
  - PERIPHERAL VASCULAR DISORDER [None]
  - PHARYNGEAL OEDEMA [None]
  - PRE-ECLAMPSIA [None]
  - RASH [None]
  - RENAL DISORDER [None]
  - SYNCOPE [None]
  - THIRST [None]
  - TREATMENT NONCOMPLIANCE [None]
  - VOMITING [None]
  - WEIGHT INCREASED [None]
